FAERS Safety Report 6862024-4 (Version None)
Quarter: 2010Q3

REPORT INFORMATION
  Report Type: 
  Country: None (occurrence: None)
  Receive Date: 20100721
  Receipt Date: 20100720
  Transmission Date: 20110219
  Serious: Yes (Death, Hospitalization, Other)
  Sender: FDA-Public Use
  Company Number: US-ASTRAZENECA-2007UW08815

PATIENT
  Age: 14964 Day
  Sex: Female
  Weight: 66.4 kg

DRUGS (47)
  1. SEROQUEL [Suspect]
     Indication: HALLUCINATION, AUDITORY
     Route: 048
     Dates: start: 19950101, end: 20050101
  2. SEROQUEL [Suspect]
     Indication: BIPOLAR DISORDER
     Route: 048
     Dates: start: 19950101, end: 20050101
  3. SEROQUEL [Suspect]
     Indication: DEPRESSION
     Route: 048
     Dates: start: 19950101, end: 20050101
  4. SEROQUEL [Suspect]
     Route: 048
     Dates: start: 19980101, end: 20030101
  5. SEROQUEL [Suspect]
     Route: 048
     Dates: start: 19980101, end: 20030101
  6. SEROQUEL [Suspect]
     Route: 048
     Dates: start: 19980101, end: 20030101
  7. SEROQUEL [Suspect]
     Route: 048
     Dates: start: 20060225
  8. SEROQUEL [Suspect]
     Route: 048
     Dates: start: 20060225
  9. SEROQUEL [Suspect]
     Route: 048
     Dates: start: 20060225
  10. SEROQUEL [Suspect]
     Route: 048
     Dates: start: 20080122, end: 20080126
  11. SEROQUEL [Suspect]
     Route: 048
     Dates: start: 20080122, end: 20080126
  12. SEROQUEL [Suspect]
     Route: 048
     Dates: start: 20080122, end: 20080126
  13. RISPERDAL [Suspect]
     Route: 065
  14. ZYPREXA [Suspect]
     Route: 065
     Dates: start: 20080101
  15. HALDOL [Concomitant]
     Route: 065
     Dates: start: 20050101
  16. THORAZINE [Concomitant]
     Route: 065
     Dates: start: 20050101
  17. TRILAFON [Concomitant]
     Route: 065
     Dates: start: 20050101
  18. NOVOLOG [Concomitant]
     Dosage: 30 UNITS TWICE A DAY.
     Route: 058
  19. METOCLOPRAMIDE [Concomitant]
     Route: 048
  20. ZOCOR [Concomitant]
     Route: 048
  21. ALBUTEROL [Concomitant]
     Dosage: 90 MCG
     Route: 045
  22. ENDOCET/PERCOCET [Concomitant]
     Dosage: 10 MG - 325 MG
     Route: 048
  23. TYLENOL [Concomitant]
     Route: 065
  24. LISINOPRIL [Concomitant]
     Dosage: 10 - 20 MG
     Route: 048
     Dates: start: 20080122
  25. PREVACID [Concomitant]
     Route: 048
  26. OMNICEF [Concomitant]
     Route: 048
  27. AVANDIA [Concomitant]
     Route: 048
  28. PRAVACHOL [Concomitant]
     Route: 048
  29. ACTOPLUS MET [Concomitant]
     Route: 065
  30. NASONEX [Concomitant]
     Dosage: 50 MCG
     Route: 045
  31. FLOXIN [Concomitant]
     Route: 065
  32. LANTUS [Concomitant]
     Route: 065
  33. FLUCONAZOLE [Concomitant]
     Dosage: 100-150 MG
     Route: 048
     Dates: start: 20080101
  34. CRESTOR [Concomitant]
     Route: 048
  35. HUMALOG [Concomitant]
     Dosage: 100 UNIT/ML
     Route: 030
  36. AVELOX [Concomitant]
     Route: 048
  37. SINEQUAN [Concomitant]
     Route: 065
     Dates: start: 20080126
  38. FLEXERIL [Concomitant]
     Route: 065
  39. PROMETHAZINE [Concomitant]
     Route: 042
  40. MYTUSSIN [Concomitant]
     Route: 065
  41. TRAZODONE HYDROCHLORIDE [Concomitant]
     Route: 065
  42. LEXAPRO [Concomitant]
     Dates: start: 20080126
  43. GABAPENTIN [Concomitant]
     Dates: start: 20080126
  44. DOXEPIN HCL [Concomitant]
     Route: 048
     Dates: start: 20080122
  45. DOXEPIN HCL [Concomitant]
     Dosage: 150 MG 225 MG AT NIGHT
     Dates: end: 20080126
  46. NOVOLIN [Concomitant]
     Dosage: 70/ 30
  47. NAPROXEN [Concomitant]

REACTIONS (37)
  - ABDOMINAL PAIN [None]
  - ASTHENIA [None]
  - BLOOD CHOLESTEROL INCREASED [None]
  - CARDIAC MURMUR [None]
  - CHOLELITHIASIS [None]
  - DEATH [None]
  - DEHYDRATION [None]
  - DERMAL CYST [None]
  - DIABETES MELLITUS INADEQUATE CONTROL [None]
  - DIABETIC COMA [None]
  - DIABETIC KETOACIDOSIS [None]
  - DIABETIC RETINOPATHY [None]
  - DIZZINESS [None]
  - DYSPNOEA [None]
  - FEELING ABNORMAL [None]
  - GASTRITIS [None]
  - GASTROOESOPHAGEAL REFLUX DISEASE [None]
  - HEADACHE [None]
  - HYPERKALAEMIA [None]
  - HYPERLIPIDAEMIA [None]
  - HYPERPROLACTINAEMIA [None]
  - LETHARGY [None]
  - MALAISE [None]
  - METABOLIC ACIDOSIS [None]
  - ORAL CANDIDIASIS [None]
  - PANCREATITIS [None]
  - RENAL FAILURE CHRONIC [None]
  - SOMNOLENCE [None]
  - SUBCUTANEOUS ABSCESS [None]
  - SWELLING [None]
  - TOBACCO ABUSE [None]
  - TYPE 1 DIABETES MELLITUS [None]
  - TYPE 2 DIABETES MELLITUS [None]
  - URINARY TRACT INFECTION [None]
  - VAGINAL DISCHARGE [None]
  - VULVOVAGINAL CANDIDIASIS [None]
  - VULVOVAGINAL PRURITUS [None]
